FAERS Safety Report 7950258-7 (Version None)
Quarter: 2011Q4

REPORT INFORMATION
  Report Type: 
  Country: None (occurrence: None)
  Receive Date: 20111130
  Receipt Date: 20111117
  Transmission Date: 20120403
  Serious: Yes (Hospitalization)
  Sender: FDA-Public Use
  Company Number: US-BAYER-2011-032228

PATIENT
  Age: 54 Year
  Sex: Female
  Weight: 94 kg

DRUGS (6)
  1. SLOW FE [Concomitant]
     Indication: POSTMENOPAUSAL HAEMORRHAGE
     Dosage: 1 TABLET TWICE DAILY
     Route: 048
     Dates: start: 20050817, end: 20050910
  2. YASMIN [Suspect]
     Indication: MENOPAUSE
     Dosage: UNK
     Dates: start: 20050817, end: 20050917
  3. VALTREX [Concomitant]
     Indication: ORAL HERPES
     Dosage: 1 TABLET TWICE DAILY X 2 DAYS
     Route: 048
     Dates: start: 20050825
  4. BLOOD TRANSFUSION, AUXILIARY PRODUCTS [Concomitant]
  5. YASMIN [Suspect]
     Indication: MENORRHAGIA
  6. YASMIN [Suspect]
     Indication: MENSTRUATION IRREGULAR

REACTIONS (9)
  - GENERAL PHYSICAL HEALTH DETERIORATION [None]
  - CHEST PAIN [None]
  - ANXIETY [None]
  - PULMONARY EMBOLISM [None]
  - PAIN [None]
  - DYSPNOEA [None]
  - INJURY [None]
  - EMOTIONAL DISTRESS [None]
  - FEAR [None]
